FAERS Safety Report 14079479 (Version 1)
Quarter: 2017Q4

REPORT INFORMATION
  Report Type: Spontaneous
  Country: US (occurrence: US)
  Receive Date: 20171012
  Receipt Date: 20171012
  Transmission Date: 20180321
  Serious: Yes (Hospitalization, Other)
  Sender: FDA-Public Use
  Company Number: JP-BRISTOL-MYERS SQUIBB COMPANY-BMS-2017-086010

PATIENT
  Age: 39 Year
  Sex: Female

DRUGS (1)
  1. WARFARIN SODIUM. [Suspect]
     Active Substance: WARFARIN SODIUM
     Indication: THROMBOPHLEBITIS
     Dosage: 7.5 MG, DAILY
     Route: 065

REACTIONS (5)
  - Haematuria [Unknown]
  - Mediastinal haematoma [Recovered/Resolved]
  - Ecchymosis [Unknown]
  - Haemoptysis [Unknown]
  - Melaena [Unknown]
